FAERS Safety Report 5623481-4 (Version None)
Quarter: 2008Q1

REPORT INFORMATION
  Report Type: 
  Country: None (occurrence: None)
  Receive Date: 20080212
  Receipt Date: 20080201
  Transmission Date: 20080703
  Serious: Yes (Other)
  Sender: FDA-Public Use
  Company Number: SE-PFIZER INC-2008010128

PATIENT
  Sex: Male

DRUGS (7)
  1. SOLU-MEDROL [Suspect]
     Dosage: FREQ:ONCE A MONTH FOR 3 DAYS
     Route: 042
  2. ALL OTHER THERAPEUTIC PRODUCTS [Concomitant]
  3. ENALAPRIL MALEATE [Concomitant]
  4. LOGIMAX [Concomitant]
  5. ZOLOFT [Concomitant]
  6. REMERON [Concomitant]
  7. DIAZEPAM [Concomitant]

REACTIONS (1)
  - BONE DENSITY DECREASED [None]
